FAERS Safety Report 5091406-9 (Version None)
Quarter: 2006Q3

REPORT INFORMATION
  Report Type: 
  Country: None (occurrence: None)
  Receive Date: 20060727
  Receipt Date: 20060413
  Transmission Date: 20061208
  Serious: Yes (Other)
  Sender: FDA-Public Use
  Company Number: 2006050973

PATIENT
  Age: 17 Year
  Sex: Male

DRUGS (3)
  1. LYRICA [Suspect]
     Indication: NEURALGIA
     Dosage: 300 MG (100 MG,3 IN  1 D),ORAL
     Route: 048
     Dates: start: 20060101, end: 20060412
  2. MS CONTIN [Concomitant]
  3. TESTOSTERONE [Concomitant]

REACTIONS (1)
  - OEDEMA PERIPHERAL [None]
